FAERS Safety Report 21425697 (Version 8)
Quarter: 2025Q4

REPORT INFORMATION
  Report Type: Report from Study
  Country: JP (occurrence: JP)
  Receive Date: 20221008
  Receipt Date: 20251209
  Transmission Date: 20260117
  Serious: Yes (Other)
  Sender: ABBVIE
  Company Number: JP-TAKEDA-2022TJP074677

PATIENT
  Age: 53 Year
  Sex: Male
  Weight: 91.8 kg

DRUGS (12)
  1. LEUPROLIDE ACETATE [Suspect]
     Active Substance: LEUPROLIDE ACETATE
     Indication: Bulbospinal muscular atrophy congenital
     Dosage: FORM STRENGTH: 11.25 MILLIGRAM, EVERY 3 MONTHS
     Route: 058
     Dates: start: 20200822
  2. CARDENALIN [Concomitant]
     Active Substance: DOXAZOSIN MESYLATE
     Indication: Product used for unknown indication
     Dosage: FORM STRENGTH: 2 MILLIGRAM
     Route: 065
  3. Micatrio [Concomitant]
     Indication: Product used for unknown indication
     Dosage: FORM STRENGTH: 1 DOSAGE FORM
     Route: 065
     Dates: end: 20240113
  4. FEBUXOSTAT [Concomitant]
     Active Substance: FEBUXOSTAT
     Indication: Product used for unknown indication
     Dosage: FORM STRENGTH: 20 MILLIGRAM
     Route: 065
     Dates: end: 20200925
  5. FEBUXOSTAT [Concomitant]
     Active Substance: FEBUXOSTAT
     Indication: Product used for unknown indication
     Dosage: FORM STRENGTH: 40 MILLIGRAM
     Route: 065
     Dates: start: 20200926
  6. CRESTOR [Concomitant]
     Active Substance: ROSUVASTATIN CALCIUM
     Indication: Product used for unknown indication
     Dosage: FORM STRENGTH: 5 MILLIGRAM
     Route: 065
     Dates: end: 20240719
  7. BISOPROLOL FUMARATE [Concomitant]
     Active Substance: BISOPROLOL FUMARATE
     Indication: Product used for unknown indication
     Dosage: FORM STRENGTH: 2.5 MILLIGRAM
     Route: 065
  8. LIVOSTIN [Concomitant]
     Active Substance: LEVOCABASTINE HYDROCHLORIDE
     Indication: Seasonal allergy
     Dosage: FORM STRENGTH: 5 MILLILITER, ?ROA : OPHTHALMIC
     Dates: start: 20210313, end: 20210416
  9. EZETIMIBE\ROSUVASTATIN [Concomitant]
     Active Substance: EZETIMIBE\ROSUVASTATIN
     Indication: Product used for unknown indication
     Dosage: FORM STRENGTH:1 DOSAGE FORM
     Route: 065
     Dates: start: 20240720
  10. SHAKUYAKUKANZOTO [Concomitant]
     Active Substance: HERBALS
     Indication: Product used for unknown indication
     Dosage: FORM STRENGTH: 6 GRAM
     Route: 065
     Dates: start: 20250411, end: 20250415
  11. ACTOS [Concomitant]
     Active Substance: PIOGLITAZONE HYDROCHLORIDE
     Indication: Product used for unknown indication
     Dosage: FORM STRENGTH:15 MILLIGRAM
     Route: 065
     Dates: start: 20240114
  12. AMLODIPINE BESYLATE\TELMISARTAN [Concomitant]
     Active Substance: AMLODIPINE BESYLATE\TELMISARTAN
     Indication: Product used for unknown indication
     Dosage: FORM STRENGTH: 1 DOSAGE FORM
     Route: 065
     Dates: start: 20240114

REACTIONS (3)
  - Diabetes mellitus [Not Recovered/Not Resolved]
  - Diabetes mellitus [Recovering/Resolving]
  - Muscle spasms [Recovered/Resolved]

NARRATIVE: CASE EVENT DATE: 20211218
